FAERS Safety Report 5519318-4 (Version None)
Quarter: 2007Q4

REPORT INFORMATION
  Report Type: 
  Country: None (occurrence: None)
  Receive Date: 20071116
  Receipt Date: 20071106
  Transmission Date: 20080405
  Serious: Yes (Other)
  Sender: FDA-Public Use
  Company Number: US-PURDUE-USA_2007_0029780

PATIENT
  Age: 18 Year
  Sex: Male

DRUGS (3)
  1. OXYCONTIN [Suspect]
     Indication: DRUG ABUSE
  2. VICODIN [Suspect]
     Indication: DRUG ABUSE
     Dates: start: 20070101
  3. MARIJUANA [Suspect]
     Indication: DRUG ABUSE

REACTIONS (2)
  - SUBSTANCE ABUSE [None]
  - SUICIDAL IDEATION [None]
